FAERS Safety Report 6326708-9 (Version None)
Quarter: 2009Q3

REPORT INFORMATION
  Report Type: 
  Country: None (occurrence: None)
  Receive Date: 20090825
  Receipt Date: 20090814
  Transmission Date: 20100115
  Serious: Yes (Other)
  Sender: FDA-Public Use
  Company Number: PHHY2009BR34399

PATIENT
  Sex: Female
  Weight: 60 kg

DRUGS (5)
  1. EXELON [Suspect]
     Indication: DEMENTIA ALZHEIMER'S TYPE
     Dosage: 1 CAPSULE IN THE MORNING AND 1 AT NIGHT
     Route: 048
     Dates: start: 20090201
  2. EXELON [Suspect]
     Dosage: 1 CAPSULE IN THE MORNING AND 1 AT NIGHT
     Route: 048
  3. ENALAPRIL MALEATE [Concomitant]
     Indication: HYPERTENSION
     Dosage: 10 MG, BID
     Route: 048
  4. RUBRANOVA [Concomitant]
     Indication: BONE DISORDER
     Dosage: UNK
     Route: 030
     Dates: start: 20090101
  5. SUF GEL [Suspect]
     Indication: ESCHAR

REACTIONS (13)
  - ATROPHY [None]
  - COGNITIVE DISORDER [None]
  - CONSTIPATION [None]
  - DYSPHAGIA [None]
  - ESCHAR [None]
  - FAECAL INCONTINENCE [None]
  - FLUID RETENTION [None]
  - LACK OF SPONTANEOUS SPEECH [None]
  - MOVEMENT DISORDER [None]
  - MUSCULOSKELETAL STIFFNESS [None]
  - OSTEOARTHRITIS [None]
  - URINARY INCONTINENCE [None]
  - URINARY RETENTION [None]
